FAERS Safety Report 26214869 (Version 1)
Quarter: 2025Q4

REPORT INFORMATION
  Report Type: Spontaneous
  Country: US (occurrence: None)
  Receive Date: 20251230
  Receipt Date: 20251230
  Transmission Date: 20260117
  Serious: Yes (Other)
  Sender: AMERICAN REGENT
  Company Number: US-AMERICAN REGENT INC-2025004503

PATIENT
  Age: 41 Year
  Sex: Female

DRUGS (2)
  1. LEVETIRACETAM [Suspect]
     Active Substance: LEVETIRACETAM
     Indication: Seizure
     Dosage: LOADED WITH LEVETIRACETAM
     Route: 065
  2. LEVETIRACETAM [Suspect]
     Active Substance: LEVETIRACETAM
     Dosage: CONTINUED A MAINTENANCE DOSE OF 500 MILLIGRAM, BID
     Route: 065

REACTIONS (1)
  - Rhabdomyolysis [Recovering/Resolving]
